FAERS Safety Report 4350850-5 (Version None)
Quarter: 2004Q2

REPORT INFORMATION
  Report Type: 
  Country: None (occurrence: None)
  Receive Date: 20040428
  Receipt Date: 20040421
  Transmission Date: 20050107
  Serious: Yes (Hospitalization)
  Sender: FDA-Public Use
  Company Number: 2003UW09437

PATIENT
  Age: 68 Year
  Sex: Female
  Weight: 78.4723 kg

DRUGS (10)
  1. ARIMIDEX [Suspect]
     Indication: BREAST CANCER
     Dosage: 1 MG QD PO
     Route: 048
     Dates: start: 19971213
  2. NOLVADEX [Suspect]
     Indication: BREAST CANCER
     Dosage: 20 MG QD PO
     Route: 048
     Dates: start: 19971213
  3. ATENOLOL [Concomitant]
  4. PLENDIL [Concomitant]
  5. VITAMIN E [Concomitant]
  6. GLUCOSAMINE [Concomitant]
  7. FIBERCON [Concomitant]
  8. BECONASE [Concomitant]
  9. LEVOTHROID [Concomitant]
  10. MOTRIN [Concomitant]

REACTIONS (4)
  - ABDOMINAL PAIN LOWER [None]
  - OVARIAN CYST [None]
  - UTERINE LEIOMYOMA [None]
  - UTERINE POLYP [None]
